FAERS Safety Report 18649703 (Version 1)
Quarter: 2020Q4

REPORT INFORMATION
  Report Type: Spontaneous
  Country: SI (occurrence: SI)
  Receive Date: 20201222
  Receipt Date: 20201222
  Transmission Date: 20210114
  Serious: Yes (Other)
  Sender: FDA-Public Use
  Company Number: SI-TEVA-2020-SI-1859889

PATIENT
  Age: 56 Year
  Sex: Male

DRUGS (3)
  1. RUSTAVO 10MG [Suspect]
     Active Substance: ROSUVASTATIN CALCIUM
     Indication: HYPERCHOLESTEROLAEMIA
     Dosage: 10 MILLIGRAM DAILY; IN THE EVENING
     Route: 048
     Dates: start: 20140331, end: 20201027
  2. ASMANEX 400 MICROGRAMS [Concomitant]
  3. ULTOP 20 MG [Concomitant]

REACTIONS (1)
  - Erectile dysfunction [Unknown]

NARRATIVE: CASE EVENT DATE: 2020
